FAERS Safety Report 14798189 (Version 1)
Quarter: 2018Q2

REPORT INFORMATION
  Report Type: Spontaneous
  Country: IL (occurrence: IL)
  Receive Date: 20180424
  Receipt Date: 20180424
  Transmission Date: 20180711
  Serious: Yes (Other)
  Sender: FDA-Public Use
  Company Number: IL-VISTAPHARM, INC.-VER201804-000577

PATIENT
  Age: 32 Year
  Sex: Female
  Weight: 75 kg

DRUGS (3)
  1. BUPIVACAINE. [Concomitant]
     Active Substance: BUPIVACAINE
     Indication: SPINAL ANAESTHESIA
  2. CEFTRIAXONE. [Concomitant]
     Active Substance: CEFTRIAXONE
     Indication: PRODUCT USED FOR UNKNOWN INDICATION
  3. MORPHINE [Suspect]
     Active Substance: MORPHINE
     Indication: SPINAL ANAESTHESIA
     Route: 039

REACTIONS (4)
  - Heart rate decreased [Recovered/Resolved]
  - Hypothermia [Recovered/Resolved]
  - Hyperhidrosis [Recovered/Resolved]
  - Blood pressure diastolic decreased [Recovered/Resolved]
